FAERS Safety Report 8882355 (Version 1)
Quarter: 2012Q4

REPORT INFORMATION
  Report Type: 
  Country: US (occurrence: US)
  Receive Date: 20121102
  Receipt Date: 20121102
  Transmission Date: 20130627
  Serious: No
  Sender: FDA-Public Use
  Company Number: US-ASTRAZENECA-2012SE81359

PATIENT
  Sex: Male

DRUGS (1)
  1. CRESTOR [Suspect]
     Route: 048

REACTIONS (6)
  - Adverse event [Unknown]
  - Gastrointestinal disorder [Unknown]
  - Gastric disorder [Unknown]
  - Impaired work ability [Unknown]
  - Blood creatine phosphokinase increased [Unknown]
  - Muscle disorder [Unknown]
